FAERS Safety Report 4504240-2 (Version None)
Quarter: 2004Q4

REPORT INFORMATION
  Report Type: 
  Country: None (occurrence: None)
  Receive Date: 20041116
  Receipt Date: 20041116
  Transmission Date: 20050328
  Serious: Yes (Hospitalization)
  Sender: FDA-Public Use
  Company Number: None

PATIENT
  Age: 72 Year
  Sex: Male
  Weight: 107.5025 kg

DRUGS (11)
  1. INSULIN [Suspect]
     Indication: DIABETES MELLITUS
     Dosage: 65 UNITS BID
     Dates: start: 20040323, end: 20040512
  2. CITALOPRAM HYDROBROMIDE [Concomitant]
  3. CLONAZEPAM [Concomitant]
  4. CLOPIDOGREL BISULFATE [Concomitant]
  5. LANOXIN [Concomitant]
  6. FUROSEMIDE [Concomitant]
  7. NOVOLIN 70/30 [Concomitant]
  8. LISINOPRIL [Concomitant]
  9. OMEPRAZOLE [Concomitant]
  10. SIMVASTATIN [Concomitant]
  11. COUMADIN [Concomitant]

REACTIONS (1)
  - HYPOGLYCAEMIA [None]
